FAERS Safety Report 5077678-5 (Version None)
Quarter: 2006Q3

REPORT INFORMATION
  Report Type: 
  Country: None (occurrence: None)
  Receive Date: 20060807
  Receipt Date: 20060721
  Transmission Date: 20061208
  Serious: Yes (Other)
  Sender: FDA-Public Use
  Company Number: US200608000128

PATIENT
  Sex: 0
  Weight: 4.2 kg

DRUGS (5)
  1. HUMALOG PEN [Suspect]
     Dosage: TRANSPLACENTAL
     Route: 064
  2. INSULIN GLARGINE (INSULIN GLARGINE) [Concomitant]
  3. PRENATAL VITAMINS (ASCORBIC ACID, BIOTIN, MINERALS NOS, NICOTINIC ACID [Concomitant]
  4. CERVIDIL [Concomitant]
  5. PITOCIN (OXYTOCIN CITRATE) [Concomitant]

REACTIONS (6)
  - DRUG EXPOSURE DURING PREGNANCY [None]
  - DRUG EXPOSURE VIA BREAST MILK [None]
  - FOETAL MOVEMENTS DECREASED [None]
  - HYPERBILIRUBINAEMIA NEONATAL [None]
  - RESPIRATORY DISORDER NEONATAL [None]
  - RESPIRATORY SYNCYTIAL VIRUS INFECTION [None]
